FAERS Safety Report 8817615 (Version 2)
Quarter: 2012Q4

REPORT INFORMATION
  Report Type: 
  Country: US (occurrence: US)
  Receive Date: 20121001
  Receipt Date: 20121204
  Transmission Date: 20130627
  Serious: No
  Sender: FDA-Public Use
  Company Number: US-TEVA-360271USA

PATIENT
  Age: 28 Year
  Sex: Female

DRUGS (2)
  1. NUVIGIL [Suspect]
     Indication: NARCOLEPSY
     Dosage: 150 Milligram Daily;
     Route: 048
  2. NUVIGIL [Suspect]
     Indication: CATAPLEXY

REACTIONS (2)
  - Rash generalised [Recovered/Resolved]
  - Headache [Recovered/Resolved]
